FAERS Safety Report 20612287 (Version 1)
Quarter: 2022Q1

REPORT INFORMATION
  Report Type: Spontaneous
  Country: JP (occurrence: JP)
  Receive Date: 20220318
  Receipt Date: 20220318
  Transmission Date: 20220423
  Serious: Yes (Hospitalization, Other)
  Sender: FDA-Public Use
  Company Number: JP-TAKEDA-2021TJP124098

PATIENT
  Age: 43 Year
  Sex: Male
  Weight: 100 kg

DRUGS (19)
  1. ADCETRIS [Suspect]
     Active Substance: BRENTUXIMAB VEDOTIN
     Indication: Hodgkin^s disease stage IV
     Dosage: 90 MILLIGRAM, QD
     Route: 041
     Dates: start: 20210604, end: 20210604
  2. ADCETRIS [Suspect]
     Active Substance: BRENTUXIMAB VEDOTIN
     Dosage: 90 MILLIGRAM, QD
     Route: 041
     Dates: start: 20210621, end: 20210621
  3. ADCETRIS [Suspect]
     Active Substance: BRENTUXIMAB VEDOTIN
     Dosage: 90 MILLIGRAM, QD
     Route: 041
     Dates: start: 20210714, end: 20210714
  4. ADCETRIS [Suspect]
     Active Substance: BRENTUXIMAB VEDOTIN
     Dosage: UNK
     Route: 041
     Dates: start: 20210818
  5. DOXORUBICIN HYDROCHLORIDE [Suspect]
     Active Substance: DOXORUBICIN HYDROCHLORIDE
     Indication: Product used for unknown indication
     Dosage: 45 MILLIGRAM, QD
     Route: 041
     Dates: start: 20210604, end: 20210604
  6. DOXORUBICIN HYDROCHLORIDE [Suspect]
     Active Substance: DOXORUBICIN HYDROCHLORIDE
     Dosage: 45 MILLIGRAM, QD
     Route: 041
     Dates: start: 20210621, end: 20210621
  7. DOXORUBICIN HYDROCHLORIDE [Suspect]
     Active Substance: DOXORUBICIN HYDROCHLORIDE
     Dosage: 45 MILLIGRAM, QD
     Route: 041
     Dates: start: 20210714, end: 20210714
  8. DOXORUBICIN HYDROCHLORIDE [Suspect]
     Active Substance: DOXORUBICIN HYDROCHLORIDE
     Dosage: UNK
     Route: 041
     Dates: start: 20210818
  9. VINBLASTINE SULFATE [Suspect]
     Active Substance: VINBLASTINE SULFATE
     Indication: Product used for unknown indication
     Dosage: 5.5 MILLIGRAM, QD
     Route: 041
     Dates: start: 20210604, end: 20210604
  10. VINBLASTINE SULFATE [Suspect]
     Active Substance: VINBLASTINE SULFATE
     Dosage: 10 MILLIGRAM, QD
     Route: 041
     Dates: start: 20210621, end: 20210621
  11. VINBLASTINE SULFATE [Suspect]
     Active Substance: VINBLASTINE SULFATE
     Dosage: 10 MILLIGRAM, QD
     Route: 041
     Dates: start: 20210714, end: 20210714
  12. VINBLASTINE SULFATE [Suspect]
     Active Substance: VINBLASTINE SULFATE
     Dosage: UNK
     Route: 041
     Dates: start: 20210818
  13. DACARBAZINE [Suspect]
     Active Substance: DACARBAZINE
     Indication: Product used for unknown indication
     Dosage: 680 MILLIGRAM, QD
     Route: 041
     Dates: start: 20210604, end: 20210604
  14. DACARBAZINE [Suspect]
     Active Substance: DACARBAZINE
     Dosage: 680 MILLIGRAM, QD
     Route: 041
     Dates: start: 20210621, end: 20210621
  15. DACARBAZINE [Suspect]
     Active Substance: DACARBAZINE
     Dosage: 680 MILLIGRAM, QD
     Route: 041
     Dates: start: 20210714, end: 20210714
  16. DACARBAZINE [Suspect]
     Active Substance: DACARBAZINE
     Dosage: UNK
     Route: 041
     Dates: start: 20210818
  17. SULFAMETHOXAZOLE\TRIMETHOPRIM [Suspect]
     Active Substance: SULFAMETHOXAZOLE\TRIMETHOPRIM
     Indication: Pneumonia bacterial
     Dosage: UNK
     Route: 065
     Dates: start: 20210728
  18. SULFAMETHOXAZOLE\TRIMETHOPRIM [Suspect]
     Active Substance: SULFAMETHOXAZOLE\TRIMETHOPRIM
     Indication: Pneumocystis jirovecii pneumonia
  19. SULFAMETHOXAZOLE\TRIMETHOPRIM [Suspect]
     Active Substance: SULFAMETHOXAZOLE\TRIMETHOPRIM
     Indication: Pneumonia fungal

REACTIONS (7)
  - Cell-mediated immune deficiency [Unknown]
  - Condition aggravated [Unknown]
  - Pneumocystis jirovecii pneumonia [Recovered/Resolved]
  - Full blood count decreased [Recovered/Resolved]
  - Campylobacter colitis [Recovered/Resolved]
  - Drug eruption [Unknown]
  - Lymphadenopathy [Unknown]

NARRATIVE: CASE EVENT DATE: 20210630
